FAERS Safety Report 13207147 (Version 1)
Quarter: 2017Q1

REPORT INFORMATION
  Report Type: Spontaneous
  Country: US (occurrence: US)
  Receive Date: 20170209
  Receipt Date: 20170209
  Transmission Date: 20170428
  Serious: Yes (Other)
  Sender: FDA-Public Use
  Company Number: None

PATIENT
  Age: 34 Year
  Sex: Female
  Weight: 130.5 kg

DRUGS (3)
  1. AUGMENTIN [Suspect]
     Active Substance: AMOXICILLIN\CLAVULANATE POTASSIUM
     Indication: TOOTH INFECTION
     Dosage: ?          QUANTITY:1 TABLET(S);?
     Route: 048
     Dates: start: 20170129, end: 20170209
  2. VITAMIN D [Concomitant]
     Active Substance: CHOLECALCIFEROL
  3. IRON SUPPLEMENT [Concomitant]
     Active Substance: IRON

REACTIONS (3)
  - Urticaria [None]
  - Skin disorder [None]
  - Rash [None]

NARRATIVE: CASE EVENT DATE: 20170202
